FAERS Safety Report 9214739 (Version 2)
Quarter: 2013Q2

REPORT INFORMATION
  Report Type: Spontaneous
  Country: US (occurrence: US)
  Receive Date: 20130405
  Receipt Date: 20130507
  Transmission Date: 20140414
  Serious: Yes (Other)
  Sender: FDA-Public Use
  Company Number: US-ELI_LILLY_AND_COMPANY-US201201005911

PATIENT
  Age: 54 Year
  Sex: Female

DRUGS (13)
  1. FORTEO [Suspect]
     Indication: OSTEOPOROSIS
     Dosage: 20 UG, QD
     Dates: start: 201112
  2. FORTEO [Suspect]
     Dosage: 20 UG, QD
  3. FORTEO [Suspect]
     Dosage: 20 UG, QD
  4. FORTEO [Suspect]
     Dosage: 20 UG, QD
  5. FORTEO [Suspect]
     Dosage: 20 UG, QD
  6. CALCIUM 600 PLUS VITAMIN D [Concomitant]
     Dosage: 200 U, TID
  7. LISINOPRIL [Concomitant]
     Dosage: 20 MG, QD
  8. DOXYCYCLINE [Concomitant]
     Dosage: 100 MG, QD
  9. LORTAB [Concomitant]
     Dosage: 10 MG, EVERY 6 HRS
  10. DEXLANSOPRAZOLE [Concomitant]
     Dosage: 60 MG, QD
  11. SAVELLA [Concomitant]
     Dosage: 50 MG, BID
  12. XANAX [Concomitant]
     Dosage: 0.5 MG, TID
  13. MIRTAZAPINE [Concomitant]
     Dosage: 15 MG, QD

REACTIONS (20)
  - Osteonecrosis [Unknown]
  - General physical health deterioration [Unknown]
  - Abdominal discomfort [Unknown]
  - Abdominal pain upper [Not Recovered/Not Resolved]
  - Malaise [Unknown]
  - Pain in extremity [Unknown]
  - Mood altered [Unknown]
  - Dizziness postural [Unknown]
  - Diarrhoea [Not Recovered/Not Resolved]
  - Asthenia [Unknown]
  - Headache [Not Recovered/Not Resolved]
  - Injection site pain [Not Recovered/Not Resolved]
  - Injection site bruising [Recovered/Resolved]
  - Injection site bruising [Unknown]
  - Nausea [Not Recovered/Not Resolved]
  - Medication error [Not Recovered/Not Resolved]
  - Hand fracture [Unknown]
  - Pain [Unknown]
  - Pain [Unknown]
  - Tooth fracture [Unknown]
